FAERS Safety Report 8719902 (Version 2)
Quarter: 2012Q4

REPORT INFORMATION
  Report Type: 
  Country: FR (occurrence: FR)
  Receive Date: 20120813
  Receipt Date: 20120919
  Transmission Date: 20130627
  Serious: Yes (Other)
  Sender: FDA-Public Use
  Company Number: FR-PFIZER INC-2012190419

PATIENT
  Age: 64 Year
  Sex: Male
  Weight: 74.7 kg

DRUGS (4)
  1. TRIFLUCAN [Suspect]
     Indication: FUNGAL INFECTION
     Dosage: 50 mg, 2x/day
     Route: 048
     Dates: start: 201205
  2. TRIFLUCAN [Suspect]
     Indication: CANDIDIASIS
     Dosage: 50 mg, daily
     Route: 048
     Dates: start: 201206, end: 20120627
  3. LEVOTHYROX [Concomitant]
     Dosage: 100 ug, daily
  4. INIPOMP [Concomitant]
     Dosage: 40 mg, daily

REACTIONS (2)
  - Focal nodular hyperplasia [Unknown]
  - Hepatocellular carcinoma [Unknown]
